FAERS Safety Report 6553392-1 (Version None)
Quarter: 2010Q1

REPORT INFORMATION
  Report Type: 
  Country: None (occurrence: None)
  Receive Date: 20100127
  Receipt Date: 20090921
  Transmission Date: 20100710
  Serious: No
  Sender: FDA-Public Use
  Company Number: A0808272A

PATIENT
  Age: 62 Year
  Sex: Male

DRUGS (2)
  1. IMITREX [Suspect]
     Indication: CLUSTER HEADACHE
     Route: 058
     Dates: start: 20090701, end: 20090820
  2. NEURONTIN [Concomitant]

REACTIONS (1)
  - NEUROPATHY PERIPHERAL [None]
